FAERS Safety Report 8100350-1 (Version None)
Quarter: 2012Q1

REPORT INFORMATION
  Report Type: 
  Country: None (occurrence: None)
  Receive Date: 20120129
  Receipt Date: 20111123
  Transmission Date: 20120608
  Serious: No
  Sender: FDA-Public Use
  Company Number: US-ABBOTT-11P-163-0877826-00

PATIENT
  Age: 28 Year
  Sex: Female

DRUGS (8)
  1. OMEPRAZOLE [Concomitant]
     Indication: GASTROOESOPHAGEAL REFLUX DISEASE
     Route: 048
  2. TORADOL [Concomitant]
     Indication: PRODUCT USED FOR UNKNOWN INDICATION
     Dosage: UP TO 4 PER WEEK, PRN
  3. HUMIRA [Suspect]
     Indication: ANKYLOSING SPONDYLITIS
     Dates: start: 20111110
  4. PREDNISONE TAB [Concomitant]
     Indication: ANKYLOSING SPONDYLITIS
     Route: 048
  5. LORATADINE [Concomitant]
     Indication: HYPERSENSITIVITY
     Route: 048
  6. PLAQUENIL [Concomitant]
     Indication: SYSTEMIC LUPUS ERYTHEMATOSUS
     Route: 048
  7. ALBUTEROL [Concomitant]
     Indication: ASTHMA
     Dosage: EVERY 4 HOURS, AS REQUIRED
     Route: 055
  8. SULINDAC [Concomitant]
     Indication: ANKYLOSING SPONDYLITIS
     Route: 048

REACTIONS (3)
  - COCCYDYNIA [None]
  - INJECTION SITE PAIN [None]
  - PAIN IN EXTREMITY [None]
